FAERS Safety Report 7525196-4 (Version None)
Quarter: 2011Q2

REPORT INFORMATION
  Report Type: 
  Country: None (occurrence: None)
  Receive Date: 20110606
  Receipt Date: 20110527
  Transmission Date: 20111010
  Serious: Yes (Other)
  Sender: FDA-Public Use
  Company Number: US-ASTRAZENECA-2011SE07202

PATIENT
  Age: 67 Year
  Sex: Female

DRUGS (4)
  1. NEXIUM [Suspect]
     Route: 048
  2. CRESTOR [Suspect]
     Route: 048
  3. PRILOSEC [Suspect]
     Route: 048
  4. CHEMO [Concomitant]

REACTIONS (5)
  - DRUG INEFFECTIVE [None]
  - BONE MARROW TRANSPLANT [None]
  - MALAISE [None]
  - DRUG DOSE OMISSION [None]
  - LEUKAEMIA [None]
